FAERS Safety Report 6700445-0 (Version None)
Quarter: 2010Q2

REPORT INFORMATION
  Report Type: 
  Country: None (occurrence: None)
  Receive Date: 20100428
  Receipt Date: 20100419
  Transmission Date: 20101027
  Serious: Yes (Other)
  Sender: FDA-Public Use
  Company Number: B0648418A

PATIENT
  Age: 26 Year
  Sex: Female

DRUGS (1)
  1. ALLI [Suspect]
     Dosage: 60MG TWICE PER DAY
     Route: 065

REACTIONS (7)
  - ABDOMINAL PAIN [None]
  - COLITIS [None]
  - DIARRHOEA [None]
  - DIZZINESS [None]
  - GASTROINTESTINAL INFLAMMATION [None]
  - NAUSEA [None]
  - VOMITING [None]
